FAERS Safety Report 9519606 (Version 2)
Quarter: 2013Q3

REPORT INFORMATION
  Report Type: Report from Study
  Country: US (occurrence: US)
  Receive Date: 20130912
  Receipt Date: 20130923
  Transmission Date: 20140515
  Serious: Yes (Hospitalization)
  Sender: FDA-Public Use
  Company Number: US-ACTELION-A-NJ2013-88169

PATIENT
  Age: 66 Year
  Sex: Male

DRUGS (2)
  1. VELETRI [Suspect]
     Indication: PULMONARY ARTERIAL HYPERTENSION
     Dosage: 12.5 UNK, UNK
     Route: 042
     Dates: start: 20130614
  2. VELETRI [Suspect]
     Dosage: 16.5 UNK, UNK
     Route: 042
     Dates: start: 20130612

REACTIONS (5)
  - Renal failure [Unknown]
  - Dialysis [Unknown]
  - Cellulitis [Unknown]
  - Venous thrombosis [Unknown]
  - Hypotension [Unknown]
